FAERS Safety Report 26053011 (Version 1)
Quarter: 2025Q4

REPORT INFORMATION
  Report Type: Spontaneous
  Country: RU (occurrence: RU)
  Receive Date: 20251117
  Receipt Date: 20251117
  Transmission Date: 20260118
  Serious: Yes (Hospitalization, Other)
  Sender: STRIDES
  Company Number: RU-STRIDES ARCOLAB LIMITED-2025SP014117

PATIENT
  Age: 14 Year
  Sex: Male

DRUGS (20)
  1. URSODIOL [Suspect]
     Active Substance: URSODIOL
     Indication: Toxic epidermal necrolysis
     Dosage: 15 MILLIGRAM/KILOGRAM, QD
     Route: 065
  2. DIAZEPAM [Suspect]
     Active Substance: DIAZEPAM
     Indication: Severe myoclonic epilepsy of infancy
     Dosage: UNK
     Route: 065
  3. TOPIRAMATE [Suspect]
     Active Substance: TOPIRAMATE
     Indication: Severe myoclonic epilepsy of infancy
     Dosage: 50 MILLIGRAM, IN THE MORNING
     Route: 065
  4. TOPIRAMATE [Suspect]
     Active Substance: TOPIRAMATE
     Dosage: 75 MILLIGRAM, IN THE EVENING
     Route: 065
  5. LEVETIRACETAM [Suspect]
     Active Substance: LEVETIRACETAM
     Indication: Severe myoclonic epilepsy of infancy
     Dosage: 200 MILLIGRAM, BID
     Route: 065
  6. ETHOSUXIMIDE [Suspect]
     Active Substance: ETHOSUXIMIDE
     Indication: Severe myoclonic epilepsy of infancy
     Dosage: UNK
     Route: 065
  7. METHYLPREDNISOLONE [Suspect]
     Active Substance: METHYLPREDNISOLONE
     Indication: Toxic epidermal necrolysis
     Dosage: 10 MILLIGRAM/KILOGRAM, QD
     Route: 065
  8. CHLOROPYRAMINE [Suspect]
     Active Substance: CHLOROPYRAMINE
     Indication: Toxic epidermal necrolysis
     Dosage: 20 MILLIGRAM
     Route: 042
  9. Pagluferal 2 [Concomitant]
     Indication: Severe myoclonic epilepsy of infancy
     Dosage: UNK, BID
     Route: 065
     Dates: start: 20240117
  10. Pagluferal 3 [Concomitant]
     Indication: Severe myoclonic epilepsy of infancy
     Dosage: RECEIVING 1 TABLET, BID
     Route: 065
     Dates: start: 20240127
  11. STIRIPENTOL [Concomitant]
     Active Substance: STIRIPENTOL
     Indication: Severe myoclonic epilepsy of infancy
     Dosage: UNK
     Route: 065
     Dates: start: 20240117
  12. CLOBAZAM [Concomitant]
     Active Substance: CLOBAZAM
     Indication: Severe myoclonic epilepsy of infancy
     Dosage: 250 MILLIGRAM, BID
     Route: 065
  13. CLOBAZAM [Concomitant]
     Active Substance: CLOBAZAM
     Dosage: 500 MILLIGRAM, BID
     Route: 065
  14. VALPROIC ACID [Concomitant]
     Active Substance: VALPROIC ACID
     Indication: Severe myoclonic epilepsy of infancy
     Dosage: 500 MILLIGRAM, BID
     Route: 065
  15. OMEPRAZOLE [Concomitant]
     Active Substance: OMEPRAZOLE
     Indication: Prophylaxis
     Dosage: 20 MILLIGRAM, QD
     Route: 065
  16. ALGELDRATE [Concomitant]
     Active Substance: ALGELDRATE
     Indication: Product used for unknown indication
     Dosage: UNK
     Route: 065
  17. MAGNESIUM HYDROXIDE [Concomitant]
     Active Substance: MAGNESIUM HYDROXIDE
     Indication: Product used for unknown indication
     Dosage: UNK
     Route: 065
  18. BENZOCAINE [Concomitant]
     Indication: Product used for unknown indication
     Dosage: UNK
     Route: 065
  19. VALPROATE SODIUM [Concomitant]
     Active Substance: VALPROATE SODIUM
     Indication: Severe myoclonic epilepsy of infancy
     Dosage: UNK
     Route: 065
  20. DEXAMETHASONE [Concomitant]
     Active Substance: DEXAMETHASONE
     Indication: Severe myoclonic epilepsy of infancy
     Dosage: UNK
     Route: 065
     Dates: start: 202401

REACTIONS (2)
  - Disease progression [Unknown]
  - Off label use [Unknown]
